FAERS Safety Report 4375414-9 (Version None)
Quarter: 2004Q2

REPORT INFORMATION
  Report Type: 
  Country: None (occurrence: None)
  Receive Date: 20040607
  Receipt Date: 20031003
  Transmission Date: 20050107
  Serious: Yes (Other)
  Sender: FDA-Public Use
  Company Number: 348363

PATIENT
  Age: 44 Year
  Sex: Female

DRUGS (1)
  1. ACCUTANE [Suspect]
     Indication: ACNE
     Dosage: 2 PER DAY ORAL
     Route: 048
     Dates: start: 20030204, end: 20030430

REACTIONS (4)
  - ADVERSE EVENT [None]
  - DEPRESSION [None]
  - DRY MOUTH [None]
  - KERATOCONJUNCTIVITIS SICCA [None]
